FAERS Safety Report 11687259 (Version 2)
Quarter: 2015Q4

REPORT INFORMATION
  Report Type: Spontaneous
  Country: FR (occurrence: FR)
  Receive Date: 20151030
  Receipt Date: 20151230
  Transmission Date: 20160304
  Serious: Yes (Death, Hospitalization)
  Sender: FDA-Public Use
  Company Number: FR-SA-2015SA171761

PATIENT
  Age: 62 Year
  Sex: Female

DRUGS (12)
  1. STILNOX [Suspect]
     Active Substance: ZOLPIDEM TARTRATE
     Indication: INSOMNIA
     Route: 048
     Dates: start: 20150821, end: 20150906
  2. CEFEPIME [Suspect]
     Active Substance: CEFEPIME HYDROCHLORIDE
     Indication: INFECTION
     Dosage: STRENGTH: 2 G
     Route: 042
     Dates: start: 20150829, end: 20150906
  3. ACUPAN [Suspect]
     Active Substance: NEFOPAM HYDROCHLORIDE
     Indication: PAIN
     Route: 048
     Dates: start: 20150831, end: 20150913
  4. FOSFOMYCIN [Suspect]
     Active Substance: FOSFOMYCIN
     Indication: INFECTION
     Route: 042
     Dates: start: 20150829, end: 20150906
  5. INEXIUM [Suspect]
     Active Substance: ESOMEPRAZOLE
     Route: 048
     Dates: start: 20150822, end: 20150901
  6. PARACETAMOL [Suspect]
     Active Substance: ACETAMINOPHEN
     Indication: PAIN
     Dosage: STRENGTH: 10 MG/ML
     Route: 042
     Dates: start: 20150827, end: 20150913
  7. TARDYFERON [Concomitant]
     Active Substance: FERROUS SULFATE\FOLIC ACID
  8. CORDARONE [Suspect]
     Active Substance: AMIODARONE HYDROCHLORIDE
     Route: 065
     Dates: start: 20150821, end: 20150911
  9. COLIMYCINE [Suspect]
     Active Substance: COLISTIMETHATE SODIUM
     Indication: INFECTION
     Route: 042
     Dates: start: 20150829, end: 20150906
  10. BISOCE [Concomitant]
     Active Substance: BISOPROLOL
     Dosage: STRENGTH: 2.5MG
  11. INEXIUM [Suspect]
     Active Substance: ESOMEPRAZOLE
     Route: 042
     Dates: start: 20150902, end: 20150907
  12. CILASTATIN/IMIPENEM [Concomitant]
     Dates: start: 20150821, end: 20150829

REACTIONS (1)
  - Stevens-Johnson syndrome [Recovering/Resolving]

NARRATIVE: CASE EVENT DATE: 20150903
